FAERS Safety Report 13405298 (Version 3)
Quarter: 2017Q2

REPORT INFORMATION
  Report Type: Spontaneous
  Country: MX (occurrence: MX)
  Receive Date: 20170405
  Receipt Date: 20170427
  Transmission Date: 20170830
  Serious: Yes (Hospitalization)
  Sender: FDA-Public Use
  Company Number: MX-B.I. PHARMACEUTICALS,INC./RIDGEFIELD-2017-BI-018794

PATIENT
  Sex: Female
  Weight: 58 kg

DRUGS (1)
  1. JARDIANZ DUO [Suspect]
     Active Substance: EMPAGLIFLOZIN\METFORMIN HYDROCHLORIDE
     Indication: TYPE 2 DIABETES MELLITUS
     Dosage: 12.5/1000 MG, TOTAL DRUG DURATION: 3 WEEKS
     Route: 048
     Dates: start: 20170303, end: 20170324

REACTIONS (2)
  - Diabetic ketoacidosis [Recovered/Resolved]
  - Urinary tract infection [Unknown]

NARRATIVE: CASE EVENT DATE: 20170324
